FAERS Safety Report 23964077 (Version 1)
Quarter: 2024Q2

REPORT INFORMATION
  Report Type: Spontaneous
  Country: US (occurrence: None)
  Receive Date: 20240611
  Receipt Date: 20240611
  Transmission Date: 20240716
  Serious: Yes (Other)
  Sender: FDA-Public Use
  Company Number: None

PATIENT
  Age: 79 Year
  Sex: Male

DRUGS (11)
  1. AMBRISENTAN [Suspect]
     Active Substance: AMBRISENTAN
     Indication: Pulmonary arterial hypertension
     Dosage: 10MG QD ORAL
     Route: 048
     Dates: start: 20190927
  2. AMBRISENTAN [Suspect]
     Active Substance: AMBRISENTAN
     Indication: Pulmonary arterial hypertension
  3. TADALAFIL [Concomitant]
     Active Substance: TADALAFIL
  4. LOSARTAN [Concomitant]
  5. ADVAIR HFA [Concomitant]
     Active Substance: FLUTICASONE PROPIONATE\SALMETEROL XINAFOATE
  6. ALBUTEROL HFA [Concomitant]
  7. MONTELUKAST [Concomitant]
  8. SPIRONOLACTONE [Concomitant]
  9. FLONASE [Concomitant]
  10. OMEPRAZOLE [Concomitant]
  11. FUROSEMIDE [Concomitant]

REACTIONS (4)
  - Hepatic encephalopathy [None]
  - Treatment noncompliance [None]
  - Inappropriate schedule of product administration [None]
  - Frequent bowel movements [None]

NARRATIVE: CASE EVENT DATE: 20240605
